FAERS Safety Report 9530846 (Version 1)
Quarter: 2013Q2

REPORT INFORMATION
  Report Type: Spontaneous
  Country: US (occurrence: None)
  Receive Date: 20130412
  Receipt Date: 20130412
  Transmission Date: 20140414
  Serious: Yes (Other)
  Sender: FDA-Public Use
  Company Number: E2B_00000635

PATIENT
  Age: 21 Year
  Sex: Female

DRUGS (2)
  1. LEVETIRACETAM [Suspect]
     Indication: CONVULSION
     Route: 048
     Dates: start: 201210
  2. LEVETIRACETAM [Suspect]
     Route: 048
     Dates: start: 201210, end: 201301

REACTIONS (2)
  - Convulsion [None]
  - Drug ineffective [None]
